FAERS Safety Report 9226182 (Version 4)
Quarter: 2013Q4

REPORT INFORMATION
  Report Type: Report from Study
  Country: US (occurrence: US)
  Receive Date: 20130411
  Receipt Date: 20131007
  Transmission Date: 20140711
  Serious: Yes (Death, Other)
  Sender: FDA-Public Use
  Company Number: US-US-EMD SERONO, INC.-7203962

PATIENT
  Age: 74 Year
  Sex: Male

DRUGS (1)
  1. REBIF [Suspect]
     Indication: MULTIPLE SCLEROSIS
     Route: 058
     Dates: start: 20070712

REACTIONS (7)
  - Lung neoplasm malignant [Fatal]
  - Lung disorder [Fatal]
  - Diabetes mellitus [Fatal]
  - Multiple sclerosis [Fatal]
  - Cerebrovascular accident [Unknown]
  - Asthenia [Unknown]
  - Fatigue [Not Recovered/Not Resolved]
